FAERS Safety Report 21097938 (Version 1)
Quarter: 2022Q3

REPORT INFORMATION
  Report Type: Spontaneous
  Country: EE (occurrence: EE)
  Receive Date: 20220719
  Receipt Date: 20220719
  Transmission Date: 20221027
  Serious: Yes (Hospitalization, Other)
  Sender: FDA-Public Use
  Company Number: EE-BAYER-2022A098846

PATIENT
  Age: 84 Year
  Sex: Male

DRUGS (9)
  1. XARELTO [Suspect]
     Active Substance: RIVAROXABAN
     Indication: Atrial fibrillation
     Dosage: 20 MG, QD
     Route: 048
  2. FLOSIN [FLURBIPROFEN] [Concomitant]
     Dosage: 0.4 MG, QD
  3. PROPAFENONE [Concomitant]
     Active Substance: PROPAFENONE
     Dosage: 300 MG, QD
  4. ZOPICLONE [Concomitant]
     Active Substance: ZOPICLONE
     Dosage: 7.5 MG, QD
  5. DIAZEPAM [Concomitant]
     Active Substance: DIAZEPAM
     Dosage: 5 MG, PRN
  6. WARFARIN SODIUM [Concomitant]
     Active Substance: WARFARIN SODIUM
     Dosage: 9 MG
  7. METOPROLOL SUCCINATE [Concomitant]
     Active Substance: METOPROLOL SUCCINATE
     Dosage: 25 MG, BID
  8. PROPAFENONE [Concomitant]
     Active Substance: PROPAFENONE
     Dosage: 300 MG
  9. METOPROLOL [Concomitant]
     Active Substance: METOPROLOL
     Dosage: 12.5 MG, QD

REACTIONS (2)
  - Haemorrhage urinary tract [Unknown]
  - Bladder cancer [Unknown]

NARRATIVE: CASE EVENT DATE: 20220504
